FAERS Safety Report 8110620-9 (Version None)
Quarter: 2012Q1

REPORT INFORMATION
  Report Type: 
  Country: None (occurrence: None)
  Receive Date: 20120203
  Receipt Date: 20120130
  Transmission Date: 20120608
  Serious: No
  Sender: FDA-Public Use
  Company Number: US-PFIZER INC-2012026153

PATIENT
  Sex: Female
  Weight: 105 kg

DRUGS (7)
  1. ENALAPRIL [Concomitant]
     Indication: HYPERTENSION
     Dosage: 10 MG, DAILY
  2. AMLODIPINE [Concomitant]
     Indication: HYPERTENSION
     Dosage: 5 MG, DAILY
  3. MELOXICAM [Concomitant]
     Indication: PAIN
     Dosage: UNK
  4. DEPAKOTE [Concomitant]
     Indication: DEPRESSION
     Dosage: 500 MG, DAILY
  5. VIIBRYD [Concomitant]
     Indication: DEPRESSION
     Dosage: 40 MG, DAILY
  6. LYRICA [Suspect]
     Indication: FIBROMYALGIA
     Dosage: 50 MG, DAILY
     Dates: start: 20110101
  7. NEURONTIN [Concomitant]
     Indication: DEPRESSION
     Dosage: 100 MG, 3X/DAY

REACTIONS (1)
  - INCREASED APPETITE [None]
